FAERS Safety Report 24345825 (Version 1)
Quarter: 2024Q3

REPORT INFORMATION
  Report Type: Spontaneous
  Country: US (occurrence: US)
  Receive Date: 20240920
  Receipt Date: 20240920
  Transmission Date: 20241017
  Serious: No
  Sender: MERCK
  Company Number: US-009507513-2408USA008599

PATIENT
  Age: 8 Week
  Sex: Male

DRUGS (2)
  1. TRUSOPT [Suspect]
     Active Substance: DORZOLAMIDE HYDROCHLORIDE
     Indication: Glaucoma
     Dosage: TWO TIMES A DAY (BID) IN BOTH EYES (OU)
     Route: 061
  2. BEVACIZUMAB [Concomitant]
     Active Substance: BEVACIZUMAB
     Indication: Retinopathy of prematurity
     Dosage: BILATERALLY; 0.625 MG/0.025ML BEVACIZUMAB INJECTED 1.5 MM BEHIND THE LIMBUS TEMPORALLY ON A 32-GAUGE

REACTIONS (2)
  - Therapeutic product effect incomplete [Unknown]
  - Inappropriate schedule of product administration [Unknown]
